FAERS Safety Report 13341024 (Version 1)
Quarter: 2017Q1

REPORT INFORMATION
  Report Type: Spontaneous
  Country: CH (occurrence: CH)
  Receive Date: 20170316
  Receipt Date: 20170316
  Transmission Date: 20170428
  Serious: Yes (Death, Life-Threatening, Other)
  Sender: FDA-Public Use
  Company Number: CH-ASTRAZENECA-2017SE23203

PATIENT
  Age: 22398 Day
  Sex: Male
  Weight: 100 kg

DRUGS (5)
  1. DIAMICRON MR [Concomitant]
     Active Substance: GLICLAZIDE
     Indication: TYPE 2 DIABETES MELLITUS
     Route: 048
     Dates: end: 201702
  2. ASPIRIN CARDIO [Concomitant]
     Active Substance: ASPIRIN
     Indication: ARTERIAL DISORDER
     Route: 048
     Dates: start: 201611, end: 201702
  3. KOMBIGLYZE XR [Suspect]
     Active Substance: METFORMIN HYDROCHLORIDE\SAXAGLIPTIN HYDROCHLORIDE
     Indication: TYPE 2 DIABETES MELLITUS
     Route: 048
     Dates: end: 201702
  4. CRESTOR [Concomitant]
     Active Substance: ROSUVASTATIN CALCIUM
     Indication: HYPERCHOLESTEROLAEMIA
     Route: 048
     Dates: end: 201702
  5. LISITRIL [Concomitant]
     Active Substance: LISINOPRIL
     Indication: HYPERTENSION
     Route: 048
     Dates: end: 201702

REACTIONS (15)
  - Intestinal ischaemia [Unknown]
  - Hyperferritinaemia [Unknown]
  - Dehydration [Unknown]
  - Hepatic failure [Unknown]
  - Pancreatitis necrotising [Unknown]
  - Compartment syndrome [Unknown]
  - Hypofibrinogenaemia [Unknown]
  - Hypovolaemic shock [Unknown]
  - Blood creatinine increased [Unknown]
  - Disseminated intravascular coagulation [Unknown]
  - Multiple organ dysfunction syndrome [Unknown]
  - Thrombocytopenia [Unknown]
  - Pleural effusion [Unknown]
  - Lactic acidosis [Fatal]
  - Rhabdomyolysis [Unknown]

NARRATIVE: CASE EVENT DATE: 20170216
